FAERS Safety Report 25001291 (Version 1)
Quarter: 2025Q1

REPORT INFORMATION
  Report Type: Spontaneous
  Country: US (occurrence: US)
  Receive Date: 20250223
  Receipt Date: 20250223
  Transmission Date: 20250408
  Serious: No
  Sender: SANOFI AVENTIS
  Company Number: US-SA-2025SA051235

PATIENT
  Age: 69 Year
  Sex: Female
  Weight: 111.82 kg

DRUGS (23)
  1. KEVZARA [Suspect]
     Active Substance: SARILUMAB
     Indication: Rheumatoid arthritis
     Dosage: 200 MG, QOW
     Route: 058
     Dates: start: 2023
  2. FLUTICASONE PROPIONATE\SALMETEROL XINAFOATE [Concomitant]
     Active Substance: FLUTICASONE PROPIONATE\SALMETEROL XINAFOATE
  3. VENTOLIN HFA [Concomitant]
     Active Substance: ALBUTEROL SULFATE
  4. ELIQUIS [Concomitant]
     Active Substance: APIXABAN
  5. FUROSEMIDE [Concomitant]
     Active Substance: FUROSEMIDE
  6. CLONIDINE HYDROCHLORIDE [Concomitant]
     Active Substance: CLONIDINE HYDROCHLORIDE
  7. CLARITIN [Concomitant]
     Active Substance: LORATADINE
  8. POTASSIUM CHLORIDE [Concomitant]
     Active Substance: POTASSIUM CHLORIDE
  9. VITAMINS [Concomitant]
     Active Substance: VITAMINS
  10. PRILOSEC [Concomitant]
     Active Substance: OMEPRAZOLE MAGNESIUM
  11. IRON [Concomitant]
     Active Substance: IRON
  12. PLAQUENIL [Concomitant]
     Active Substance: HYDROXYCHLOROQUINE SULFATE
  13. GLUCOSAMINE SULFATE [Concomitant]
     Active Substance: GLUCOSAMINE SULFATE
  14. CALCIUM CARBONATE\CHOLECALCIFEROL [Concomitant]
     Active Substance: CALCIUM CARBONATE\CHOLECALCIFEROL
  15. B12 ACTIVE [Concomitant]
  16. FEXOFENADINE HYDROCHLORIDE [Concomitant]
     Active Substance: FEXOFENADINE HYDROCHLORIDE
  17. WELLBUTRIN XL [Concomitant]
     Active Substance: BUPROPION HYDROCHLORIDE
  18. SINGULAIR [Concomitant]
     Active Substance: MONTELUKAST SODIUM
  19. DULOXETINE HYDROCHLORIDE [Concomitant]
     Active Substance: DULOXETINE HYDROCHLORIDE
  20. VITAMIN D3 [Concomitant]
     Active Substance: CHOLECALCIFEROL
  21. GABAPENTIN [Concomitant]
     Active Substance: GABAPENTIN
  22. JARDIANCE [Concomitant]
     Active Substance: EMPAGLIFLOZIN
  23. ENTRESTO [Concomitant]
     Active Substance: SACUBITRIL\VALSARTAN

REACTIONS (1)
  - Bronchitis [Unknown]

NARRATIVE: CASE EVENT DATE: 20250102
